FAERS Safety Report 5893175-9 (Version None)
Quarter: 2008Q3

REPORT INFORMATION
  Report Type: 
  Country: None (occurrence: None)
  Receive Date: 20080923
  Receipt Date: 20070709
  Transmission Date: 20090109
  Serious: No
  Sender: FDA-Public Use
  Company Number: US-ASTRAZENECA-2007UW16082

PATIENT
  Age: 49 Year
  Sex: Male
  Weight: 154.2 kg

DRUGS (5)
  1. SEROQUEL [Suspect]
     Indication: SCHIZOPHRENIA
     Route: 048
  2. SEROQUEL [Suspect]
     Route: 048
  3. CLONAZEPAM [Concomitant]
  4. WELLBUTRIN [Concomitant]
  5. NEURONTIN [Concomitant]

REACTIONS (8)
  - CARDIAC DISORDER [None]
  - PARANOIA [None]
  - POOR PERIPHERAL CIRCULATION [None]
  - SKIN DISCOLOURATION [None]
  - SKIN DISORDER [None]
  - SYNCOPE [None]
  - THERAPEUTIC RESPONSE UNEXPECTED [None]
  - WEIGHT INCREASED [None]
